FAERS Safety Report 7512091-X (Version None)
Quarter: 2011Q2

REPORT INFORMATION
  Report Type: 
  Country: None (occurrence: None)
  Receive Date: 20110520
  Receipt Date: 20110506
  Transmission Date: 20111010
  Serious: Yes (Hospitalization)
  Sender: FDA-Public Use
  Company Number: 11-000570

PATIENT
  Age: 75 Year
  Sex: Male
  Weight: 54 kg

DRUGS (4)
  1. ALMAGATE (ALMAGATE) [Suspect]
     Indication: ABDOMINAL PAIN UPPER
     Dosage: 1.5 G, TID, ORAL
     Route: 048
  2. ALMAGATE (ALMAGATE) [Suspect]
     Indication: NAUSEA
     Dosage: 1.5 G, TID, ORAL
     Route: 048
  3. DORYX [Suspect]
     Indication: SCRUB TYPHUS
     Dosage: 100 MG, BID, ORAL
     Route: 048
  4. RANITIDINE [Suspect]
     Indication: ABDOMINAL PAIN UPPER
     Dosage: 150 MG, BID, ORAL
     Route: 048

REACTIONS (21)
  - DUODENAL ULCER [None]
  - ESCHAR [None]
  - RASH MACULO-PAPULAR [None]
  - ASPARTATE AMINOTRANSFERASE INCREASED [None]
  - MALABSORPTION [None]
  - TONGUE DRY [None]
  - BLOOD ALKALINE PHOSPHATASE INCREASED [None]
  - ABDOMINAL PAIN UPPER [None]
  - ANTIBIOTIC LEVEL BELOW THERAPEUTIC [None]
  - GASTRIC ULCER [None]
  - PLEURAL EFFUSION [None]
  - RASH PRURITIC [None]
  - NUCHAL RIGIDITY [None]
  - ALANINE AMINOTRANSFERASE INCREASED [None]
  - NAUSEA [None]
  - ENCEPHALITIS [None]
  - GAMMA-GLUTAMYLTRANSFERASE INCREASED [None]
  - PULMONARY OEDEMA [None]
  - DRUG INTERACTION [None]
  - LACUNAR INFARCTION [None]
  - CONJUNCTIVAL HYPERAEMIA [None]
